FAERS Safety Report 6916245-2 (Version None)
Quarter: 2010Q3

REPORT INFORMATION
  Report Type: 
  Country: None (occurrence: None)
  Receive Date: 20100805
  Receipt Date: 20100729
  Transmission Date: 20110219
  Serious: Yes (Hospitalization)
  Sender: FDA-Public Use
  Company Number: MPS1-1000358

PATIENT
  Age: 49 Year
  Sex: Female
  Weight: 53 kg

DRUGS (1)
  1. ALDURAZYME [Suspect]
     Indication: MUCOPOLYSACCHARIDOSIS I
     Dosage: 0.58 MG/KG, 1XW
     Dates: start: 20051107

REACTIONS (1)
  - SPINAL DECOMPRESSION [None]
